FAERS Safety Report 17086830 (Version 2)
Quarter: 2025Q3

REPORT INFORMATION
  Report Type: Spontaneous
  Country: EU (occurrence: EU)
  Receive Date: 20191128
  Receipt Date: 20250703
  Transmission Date: 20251021
  Serious: Yes (Other)
  Sender: ALKEM
  Company Number: None

PATIENT
  Sex: Male

DRUGS (9)
  1. MYCOPHENOLATE MOFETIL [Suspect]
     Active Substance: MYCOPHENOLATE MOFETIL
     Indication: Prophylaxis against graft versus host disease
     Route: 065
  2. MYCOPHENOLATE MOFETIL [Suspect]
     Active Substance: MYCOPHENOLATE MOFETIL
     Indication: Immunosuppressant drug therapy
  3. FLUDARABINE [Suspect]
     Active Substance: FLUDARABINE PHOSPHATE
     Indication: Immunosuppressant drug therapy
     Route: 065
  4. FLUDARABINE [Suspect]
     Active Substance: FLUDARABINE PHOSPHATE
     Indication: Allogenic stem cell transplantation
  5. OKT3 [Suspect]
     Active Substance: MUROMONAB-CD3
     Indication: Immunosuppressant drug therapy
     Route: 065
  6. THIOTEPA [Suspect]
     Active Substance: THIOTEPA
     Indication: Immunosuppressant drug therapy
     Route: 065
  7. THIOTEPA [Suspect]
     Active Substance: THIOTEPA
     Indication: Allogenic stem cell transplantation
  8. TREOSULFAN [Suspect]
     Active Substance: TREOSULFAN
     Indication: Immunosuppressant drug therapy
     Route: 065
  9. TREOSULFAN [Suspect]
     Active Substance: TREOSULFAN
     Indication: Allogenic stem cell transplantation

REACTIONS (16)
  - Retinal haemorrhage [Unknown]
  - Visual acuity reduced [Unknown]
  - Retinal injury [Unknown]
  - Sight disability [Unknown]
  - Visual field defect [Unknown]
  - Vitreous floaters [Unknown]
  - Retinal exudates [Unknown]
  - Vitritis [Unknown]
  - Retinal scar [Unknown]
  - Encephalitis cytomegalovirus [Unknown]
  - Encephalitis [Unknown]
  - Varicella zoster virus infection [Unknown]
  - Human herpesvirus 6 infection [Unknown]
  - Cytomegalovirus chorioretinitis [Unknown]
  - CNS ventriculitis [Unknown]
  - Cytomegalovirus infection [Unknown]
